FAERS Safety Report 6046970-X (Version None)
Quarter: 2009Q1

REPORT INFORMATION
  Report Type: 
  Country: None (occurrence: None)
  Receive Date: 20090112
  Receipt Date: 20081230
  Transmission Date: 20090719
  Serious: Yes (Hospitalization)
  Sender: FDA-Public Use
  Company Number: AEUSA200800298

PATIENT
  Age: 30 Year
  Sex: Female
  Weight: 87.0906 kg

DRUGS (12)
  1. GAMUNEX [Suspect]
     Indication: MYASTHENIA GRAVIS
     Dosage: QD;IV
     Route: 042
     Dates: start: 20081008, end: 20081010
  2. MESTINON [Concomitant]
  3. FIORICET [Concomitant]
  4. LORA TAB [Concomitant]
  5. SOLU-MEDROL [Concomitant]
  6. CELLCEPT [Concomitant]
  7. ADVAIR DISKUS 100/50 [Concomitant]
  8. MIDRIN /00920701 [Concomitant]
  9. IBUPROFEN TABLETS [Concomitant]
  10. MELATONIN [Concomitant]
  11. NEURONTIN [Concomitant]
  12. ALBUTEROL [Concomitant]

REACTIONS (20)
  - BACK PAIN [None]
  - COLD SWEAT [None]
  - COUGH [None]
  - DIARRHOEA [None]
  - DIPLOPIA [None]
  - DYSPNOEA [None]
  - HEADACHE [None]
  - HEART RATE INCREASED [None]
  - LOSS OF CONSCIOUSNESS [None]
  - MENINGITIS ASEPTIC [None]
  - MUSCULOSKELETAL STIFFNESS [None]
  - NAUSEA [None]
  - OEDEMA PERIPHERAL [None]
  - PAIN IN EXTREMITY [None]
  - POLYDIPSIA [None]
  - PRURITUS [None]
  - SHOCK [None]
  - URINE OUTPUT DECREASED [None]
  - VOMITING [None]
  - WEIGHT INCREASED [None]
